FAERS Safety Report 5016152-9 (Version None)
Quarter: 2006Q2

REPORT INFORMATION
  Report Type: 
  Country: None (occurrence: None)
  Receive Date: 20060414
  Receipt Date: 20060307
  Transmission Date: 20061013
  Serious: No
  Sender: FDA-Public Use
  Company Number: 2006SP001106

PATIENT
  Age: 43 Year
  Sex: Male
  Weight: 62.3696 kg

DRUGS (11)
  1. LUNESTA [Suspect]
     Indication: INSOMNIA
     Dosage: 2MG HS ORAL
     Route: 048
     Dates: start: 20060201
  2. AMLODIPINE [Concomitant]
  3. LEXAPRO [Concomitant]
  4. PANTOPRAZOLW [Concomitant]
  5. SODIUM BICARBONATE [Concomitant]
  6. FIORICET [Concomitant]
  7. MAGNESIUM [Concomitant]
  8. OXYIR [Concomitant]
  9. ACETAMINOPHEN W/ PROPOXYPHENE HCL [Concomitant]
  10. SKELAXIN [Concomitant]
  11. AMBIEN [Concomitant]

REACTIONS (1)
  - DYSGEUSIA [None]
